FAERS Safety Report 9166646 (Version 1)
Quarter: 2013Q1

REPORT INFORMATION
  Report Type: Spontaneous
  Country: US (occurrence: US)
  Receive Date: 20130315
  Receipt Date: 20130315
  Transmission Date: 20140127
  Serious: No
  Sender: FDA-Public Use
  Company Number: US-ASTRAZENECA-2013SE14033

PATIENT
  Age: 17 Year
  Sex: Male

DRUGS (1)
  1. SYMBICORT [Suspect]
     Indication: ASTHMA
     Dosage: 2 PUFFS UNK
     Route: 055
     Dates: start: 201302, end: 201302

REACTIONS (2)
  - Swollen tongue [Recovered/Resolved]
  - Throat irritation [Recovered/Resolved]
